FAERS Safety Report 20088484 (Version 1)
Quarter: 2021Q4

REPORT INFORMATION
  Report Type: Spontaneous
  Country: US (occurrence: None)
  Receive Date: 20211119
  Receipt Date: 20211119
  Transmission Date: 20220303
  Serious: No
  Sender: FDA-Public Use
  Company Number: 2021A790689

PATIENT
  Age: 65 Year
  Sex: Female
  Weight: 107.5 kg

DRUGS (8)
  1. CRESTOR [Suspect]
     Active Substance: ROSUVASTATIN CALCIUM
     Route: 048
  2. KORLYM [Suspect]
     Active Substance: MIFEPRISTONE
     Indication: Cushing^s syndrome
     Route: 048
     Dates: start: 20210919
  3. BONIVA [Concomitant]
     Active Substance: IBANDRONATE SODIUM
  4. IMITREX [Concomitant]
     Active Substance: SUMATRIPTAN SUCCINATE
  5. SUMATRIPTAN [Concomitant]
     Active Substance: SUMATRIPTAN
  6. TAPAZOLE [Concomitant]
     Active Substance: METHIMAZOLE
  7. TOPIRAMATE [Concomitant]
     Active Substance: TOPIRAMATE
  8. VITAMIN D [Concomitant]
     Active Substance: VITAMIN D NOS

REACTIONS (4)
  - Feeling abnormal [Unknown]
  - Haemorrhage [Unknown]
  - Blood glucose decreased [Unknown]
  - Rash pruritic [Recovering/Resolving]

NARRATIVE: CASE EVENT DATE: 20210101
